FAERS Safety Report 4826257-0 (Version None)
Quarter: 2005Q4

REPORT INFORMATION
  Report Type: 
  Country: None (occurrence: None)
  Receive Date: 20051109
  Receipt Date: 20051109
  Transmission Date: 20060501
  Serious: Yes (Hospitalization)
  Sender: FDA-Public Use
  Company Number: None

PATIENT
  Age: 78 Year
  Sex: Female
  Weight: 79.4702 kg

DRUGS (20)
  1. GEMCITABINE [Suspect]
     Indication: NON-SMALL CELL LUNG CANCER
     Dosage: 1000 MG/M2 IV CYCLE #1 DAY1
     Route: 042
     Dates: start: 20051027
  2. CARBOPLATIN [Suspect]
     Indication: NON-SMALL CELL LUNG CANCER
     Dosage: 5 AUC IV CYCLE #1 DAY 1
     Route: 042
     Dates: start: 20051027
  3. LISINOPRIL [Concomitant]
  4. METOPROLOL [Concomitant]
  5. FUROSEMIDE [Concomitant]
  6. INDERAL [Concomitant]
  7. ACTOS [Concomitant]
  8. GLIPIZIDE [Concomitant]
  9. NITROGLYCERIN [Concomitant]
  10. CLONAZEPAM [Concomitant]
  11. FLUOXETINE [Concomitant]
  12. PROMETHAZINE [Concomitant]
  13. ATROVENT [Concomitant]
  14. FLOVENT [Concomitant]
  15. KLOR-CON [Concomitant]
  16. MAGCITRTE [Concomitant]
  17. MORPHINE [Concomitant]
  18. PERCOCET [Concomitant]
  19. DOLASETRON [Concomitant]
  20. DEXAMETHASONE [Concomitant]

REACTIONS (5)
  - DIZZINESS [None]
  - DRUG DOSE OMISSION [None]
  - INSOMNIA [None]
  - MALAISE [None]
  - VOMITING [None]
